FAERS Safety Report 5086951-6 (Version None)
Quarter: 2006Q3

REPORT INFORMATION
  Report Type: 
  Country: None (occurrence: None)
  Receive Date: 20060821
  Receipt Date: 20060814
  Transmission Date: 20061208
  Serious: Yes (Hospitalization, Disabling)
  Sender: FDA-Public Use
  Company Number: 2006-05-1132

PATIENT
  Age: 60 Year
  Sex: Male
  Weight: 70 kg

DRUGS (7)
  1. PEG-INTRON [Suspect]
     Indication: HEPATITIS C
     Dosage: 100 MCG QW SUBCUTANEOUS
     Route: 058
     Dates: start: 20060321, end: 20060508
  2. REBETOL [Suspect]
     Indication: HEPATITIS C
     Dosage: 800 MG, ORAL
     Route: 048
     Dates: start: 20060324, end: 20060508
  3. BAYASPIRIN (ASPIRIN) TABLETS [Concomitant]
  4. THYRADIN S TABLETS [Concomitant]
  5. DIGOXIN [Concomitant]
  6. ISOSORBIDE MONONITRATE TABLETS [Concomitant]
  7. ACINON CAPSULES [Concomitant]

REACTIONS (3)
  - APHASIA [None]
  - CEREBRAL INFARCTION [None]
  - FALL [None]
